FAERS Safety Report 25403997 (Version 3)
Quarter: 2025Q2

REPORT INFORMATION
  Report Type: Spontaneous
  Country: JP (occurrence: JP)
  Receive Date: 20250606
  Receipt Date: 20250623
  Transmission Date: 20250717
  Serious: Yes (Other)
  Sender: SANOFI AVENTIS
  Company Number: JP-SA-2025SA157324

PATIENT
  Age: 93 Year
  Sex: Male

DRUGS (1)
  1. CLOPIDOGREL BISULFATE [Suspect]
     Active Substance: CLOPIDOGREL BISULFATE
     Indication: Product used for unknown indication
     Route: 048

REACTIONS (7)
  - Gallbladder rupture [Recovered/Resolved]
  - Abdominal pain lower [Recovered/Resolved]
  - Haemobilia [Recovered/Resolved]
  - Haematoma [Recovered/Resolved]
  - Hypertension [Recovered/Resolved]
  - Retroperitoneal haemorrhage [Recovered/Resolved]
  - Anaemia [Recovered/Resolved]
